FAERS Safety Report 7583764-8 (Version None)
Quarter: 2011Q2

REPORT INFORMATION
  Report Type: 
  Country: None (occurrence: None)
  Receive Date: 20110630
  Receipt Date: 20110618
  Transmission Date: 20111010
  Serious: Yes (Life-Threatening)
  Sender: FDA-Public Use
  Company Number: US-ROCHE-785548

PATIENT
  Age: 70 Year
  Sex: Female
  Weight: 74.9 kg

DRUGS (2)
  1. CISPLATIN [Suspect]
     Indication: ENDOMETRIAL CANCER
     Dosage: LAST ADMINISTERED ON 04 MAY 2011, TOTAL DOSE:180 MG, OVER 1 HOUR ON DAYS 1 AND 29 DURING RT
     Route: 042
     Dates: start: 20110406
  2. BEVACIZUMAB [Suspect]
     Indication: ENDOMETRIAL CANCER
     Dosage: TOTAL DOSE: 1122 MG, LAST ADMINISTERED ON 04 MAY 2011, OVER 30-90 MINUTES ON DAYS 1, 15 AND 29
     Route: 042
     Dates: start: 20110406

REACTIONS (1)
  - LYMPHOCYTE COUNT DECREASED [None]
